FAERS Safety Report 6401646-1 (Version None)
Quarter: 2009Q4

REPORT INFORMATION
  Report Type: 
  Country: None (occurrence: None)
  Receive Date: 20091015
  Receipt Date: 20091008
  Transmission Date: 20100525
  Serious: Yes (Hospitalization)
  Sender: FDA-Public Use
  Company Number: FR-SOLVAY-00209005979

PATIENT
  Age: 27000 Day
  Sex: Female

DRUGS (12)
  1. COVERSYL 4 MG [Suspect]
     Indication: DRUG USE FOR UNKNOWN INDICATION
     Dosage: DAILY DOSE: 4 MILLIGRAM(S)
     Route: 048
     Dates: end: 20090813
  2. METFORMIN HYDROCHLORIDE [Suspect]
     Indication: TYPE 2 DIABETES MELLITUS
     Dosage: DAILY DOSE: 3000 MILLIGRAM(S)
     Route: 048
     Dates: end: 20090813
  3. TAHOR [Suspect]
     Indication: DRUG USE FOR UNKNOWN INDICATION
     Dosage: DAILY DOSE: 20 MILLIGRAM(S)
     Route: 048
     Dates: end: 20090813
  4. COAPROVEL [Suspect]
     Indication: DRUG USE FOR UNKNOWN INDICATION
     Dosage: DAILY DOSE: 300 MILLIGRAM(S)
     Route: 048
     Dates: end: 20090813
  5. RILMENIDINE [Suspect]
     Indication: DRUG USE FOR UNKNOWN INDICATION
     Dosage: DAILY DOSE: 2 MILLIGRAM(S)
     Route: 048
     Dates: end: 20090813
  6. KARDEGIC [Suspect]
     Indication: DRUG USE FOR UNKNOWN INDICATION
     Dosage: DAILY DOSE: 75 MILLIGRAM(S)
     Route: 048
     Dates: end: 20090813
  7. DIAMICRON 80 MG [Suspect]
     Indication: DRUG USE FOR UNKNOWN INDICATION
     Dosage: DAILY DOSE: 160 MILLIGRAM(S)
     Route: 048
     Dates: end: 20090813
  8. KERLONE [Suspect]
     Indication: DRUG USE FOR UNKNOWN INDICATION
     Dosage: DAILY DOSE: 20 MILLIGRAM(S)
     Route: 048
     Dates: end: 20090813
  9. BETASERC [Suspect]
     Indication: DRUG USE FOR UNKNOWN INDICATION
     Dosage: DAILY DOSE: 48 MILLIGRAM(S)
     Route: 048
     Dates: end: 20090813
  10. LAROXYL [Suspect]
     Indication: DRUG USE FOR UNKNOWN INDICATION
     Dosage: DAILY DOSE: 7 DROP(S)
     Route: 048
     Dates: end: 20090813
  11. TAMIFLU [Suspect]
     Indication: INFLUENZA
     Dosage: DAILY DOSE: 1 DOSAGE FORM, AS USED: SINGLE
     Route: 048
     Dates: start: 20090811, end: 20090811
  12. ORACILLIN [Suspect]
     Indication: DRUG USE FOR UNKNOWN INDICATION
     Dosage: DAILY DOSE: 1 DOSAGE FORM,  AS USED: 1 DOSAGE FORM, FREQUENCY: SINGLE
     Route: 048
     Dates: start: 20090812, end: 20090812

REACTIONS (5)
  - ERYSIPELAS [None]
  - HYPERLACTACIDAEMIA [None]
  - HYPOTENSION [None]
  - RENAL FAILURE ACUTE [None]
  - SEPSIS [None]
